FAERS Safety Report 8756549 (Version 3)
Quarter: 2012Q4

REPORT INFORMATION
  Report Type: Spontaneous
  Country: DE (occurrence: None)
  Receive Date: 20120813
  Receipt Date: 20120910
  Transmission Date: 20130627
  Serious: Yes (Other)
  Sender: FDA-Public Use
  Company Number: AUR-APL-2012-03363

PATIENT
  Age: 38 Year
  Sex: Male

DRUGS (2)
  1. CITALOPRAM [Suspect]
     Indication: ANXIETY
     Route: 048
  2. CITALOPRAM [Suspect]
     Indication: ANXIETY

REACTIONS (11)
  - Mental impairment [None]
  - Suicidal ideation [None]
  - Impaired work ability [None]
  - Activities of daily living impaired [None]
  - Off label use [None]
  - Prescribed overdose [None]
  - Anxiety [None]
  - Withdrawal syndrome [None]
  - Aphthous stomatitis [None]
  - Weight gain poor [None]
  - Exposure during breast feeding [None]
